FAERS Safety Report 5972124-9 (Version None)
Quarter: 2008Q4

REPORT INFORMATION
  Report Type: 
  Country: None (occurrence: None)
  Receive Date: 20081201
  Receipt Date: 20080710
  Transmission Date: 20090506
  Serious: Yes (Hospitalization)
  Sender: FDA-Public Use
  Company Number: US-TEVA-174250USA

PATIENT
  Sex: Female

DRUGS (3)
  1. SALBUTAMOL SULFATE INHALATION, 0.09 MG [Suspect]
     Dosage: AS NEEDED
     Route: 055
     Dates: start: 20070601
  2. ALBUTEROL [Suspect]
  3. ALBUTEROL SULFATE [Suspect]

REACTIONS (2)
  - DRUG INEFFECTIVE [None]
  - OXYGEN SATURATION DECREASED [None]
